FAERS Safety Report 14545829 (Version 26)
Quarter: 2019Q1

REPORT INFORMATION
  Report Type: Report from Study
  Country: JP (occurrence: JP)
  Receive Date: 20180219
  Receipt Date: 20190326
  Transmission Date: 20190417
  Serious: Yes (Hospitalization, Other)
  Sender: FDA-Public Use
  Company Number: JP-BRISTOL-MYERS SQUIBB COMPANY-BMS-2018-014927

PATIENT
  Age: 35 Year
  Sex: Male
  Weight: 71 kg

DRUGS (41)
  1. NIVOLUMAB [Suspect]
     Active Substance: NIVOLUMAB
     Indication: PRODUCT USED FOR UNKNOWN INDICATION
     Dosage: 179.7 MG, UNK
     Route: 041
     Dates: start: 20180206, end: 20180220
  2. METFORMIN HYDROCHLORIDE. [Suspect]
     Active Substance: METFORMIN HYDROCHLORIDE
     Indication: THYMOMA
     Dosage: 500 MILLIGRAM, Q8H
     Route: 048
     Dates: start: 20180206, end: 20180227
  3. LOXOPROFEN [Concomitant]
     Active Substance: LOXOPROFEN
     Indication: PRODUCT USED FOR UNKNOWN INDICATION
     Dosage: UNK
     Route: 065
  4. SEROQUEL [Concomitant]
     Active Substance: QUETIAPINE FUMARATE
     Indication: INSOMNIA
     Dosage: 25 MG, EVERYDAY
     Route: 048
     Dates: start: 20180216
  5. PREDNISOLONE. [Suspect]
     Active Substance: PREDNISOLONE
     Indication: DERMATITIS PSORIASIFORM
     Route: 065
  6. LANSOPRAZOLE. [Concomitant]
     Active Substance: LANSOPRAZOLE
     Indication: PRODUCT USED FOR UNKNOWN INDICATION
     Dosage: UNK, QD
     Route: 065
  7. TEPRENONE [Concomitant]
     Active Substance: TEPRENONE
     Indication: GASTRITIS PROPHYLAXIS
     Dosage: 50 MG, Q8H
     Route: 048
     Dates: start: 20180216
  8. HIRUDOID [Concomitant]
     Active Substance: GLYCOSAMINOGLYCANS
     Indication: DRY SKIN
     Dosage: UNK, PRN
     Route: 062
     Dates: start: 20180215
  9. LYRICA [Concomitant]
     Active Substance: PREGABALIN
     Indication: PRODUCT USED FOR UNKNOWN INDICATION
     Dosage: 50 MG, Q12H
     Route: 048
     Dates: start: 20180502
  10. PREDONINE [Concomitant]
     Active Substance: PREDNISOLONE
     Indication: HEPATIC FUNCTION ABNORMAL
     Route: 065
  11. HYDROCORTISONE. [Suspect]
     Active Substance: HYDROCORTISONE
     Indication: DERMATITIS PSORIASIFORM
     Dosage: UNK, PRN
     Route: 003
     Dates: start: 20180529
  12. TAKECAB [Concomitant]
     Active Substance: VONOPRAZAN FUMURATE
     Indication: GASTRITIS PROPHYLAXIS
     Route: 065
  13. SYMPROIC [Concomitant]
     Active Substance: NALDEMEDINE
     Indication: CONSTIPATION
     Dosage: 0.2 MG, EVERYDAY
     Route: 048
     Dates: start: 20180216
  14. ALLOPURINOL WYETH [Concomitant]
     Indication: PRODUCT USED FOR UNKNOWN INDICATION
     Dosage: 100 MG, Q12H
     Route: 048
     Dates: end: 20180514
  15. OXYCODONE DAIICHI SANKYO [Concomitant]
     Indication: CANCER PAIN
     Dosage: 25 MG, Q12H
     Route: 048
     Dates: start: 20180502
  16. HYALEIN [Concomitant]
     Active Substance: HYALURONATE SODIUM
     Indication: DRY EYE
     Dosage: UNK, Q6H
     Route: 047
     Dates: start: 20181016
  17. WHITE PETROLATUM [Concomitant]
     Active Substance: PETROLATUM
     Indication: DERMATITIS PSORIASIFORM
     Dosage: UNK UNK, PRN
     Route: 003
     Dates: start: 20180612
  18. METFORMIN HYDROCHLORIDE. [Suspect]
     Active Substance: METFORMIN HYDROCHLORIDE
     Indication: PRODUCT USED FOR UNKNOWN INDICATION
     Dosage: 250 MG, TID
     Route: 048
     Dates: start: 20180705, end: 20181020
  19. MAGMITT [Concomitant]
     Active Substance: MAGNESIUM OXIDE
     Indication: CONSTIPATION
     Dosage: 500 MG, PRN
     Route: 048
     Dates: start: 20180207
  20. OXINORM                            /00045603/ [Concomitant]
     Active Substance: OXYCODONE HYDROCHLORIDE
     Indication: CANCER PAIN
     Route: 065
  21. DAIPHEN [Concomitant]
     Active Substance: SULFAMETHOXAZOLE\TRIMETHOPRIM
     Indication: INFECTION PROPHYLAXIS
     Dosage: 1 DF, EVERYDAY
     Route: 048
     Dates: start: 20180328
  22. URSODEOXYCHOLIC ACID [Concomitant]
     Active Substance: URSODIOL
     Indication: HEPATIC FUNCTION ABNORMAL
     Dosage: 100 MG, Q8H
     Route: 048
     Dates: start: 20180501
  23. MUCOSTA [Concomitant]
     Active Substance: REBAMIPIDE
     Indication: CORNEAL DISORDER
     Route: 065
  24. PREDNISOLONE. [Suspect]
     Active Substance: PREDNISOLONE
     Indication: PANCREATIC ENZYMES INCREASED
     Dosage: 25 MG/DAY
     Route: 048
  25. CLOBETASOL PROPIONATE. [Suspect]
     Active Substance: CLOBETASOL PROPIONATE
     Indication: DERMATITIS PSORIASIFORM
     Dosage: UNK UNK, PRN
     Route: 003
     Dates: start: 20180529
  26. TAKECAB [Concomitant]
     Active Substance: VONOPRAZAN FUMURATE
     Indication: ULCER
     Dosage: 20 MG, EVERYDAY
     Route: 048
     Dates: start: 20180217
  27. OXYCODONE DAIICHI SANKYO [Concomitant]
     Indication: PRODUCT USED FOR UNKNOWN INDICATION
     Dosage: 30 MG, Q12H
     Route: 048
     Dates: start: 20180221, end: 20180501
  28. PREDONINE [Concomitant]
     Active Substance: PREDNISOLONE
     Indication: PANCREATIC ENZYMES INCREASED
     Dosage: 15 MG, EVERYDAY
     Route: 048
     Dates: start: 20180530
  29. PREDNISOLONE. [Suspect]
     Active Substance: PREDNISOLONE
     Indication: HEPATIC FUNCTION ABNORMAL
     Dosage: 15 MG, EVERYDAY
     Route: 048
     Dates: start: 20180530
  30. LYRICA [Concomitant]
     Active Substance: PREGABALIN
     Indication: CANCER PAIN
     Dosage: 125 MG, Q12H
     Route: 048
     Dates: start: 20180217, end: 20180501
  31. MUCOSOLVAN L [Concomitant]
     Active Substance: AMBROXOL HYDROCHLORIDE
     Indication: CANCER PAIN
     Dosage: 45 MG, EVERYDAY
     Route: 048
     Dates: start: 20180324
  32. MUCOSTA [Concomitant]
     Active Substance: REBAMIPIDE
     Indication: DRY EYE
     Dosage: UNK, Q6H
     Route: 047
     Dates: start: 20181018
  33. VOLTAREN [Concomitant]
     Active Substance: DICLOFENAC SODIUM
     Indication: PRODUCT USED FOR UNKNOWN INDICATION
     Dosage: UNK
     Route: 065
  34. DICLOFENAC SODIUM. [Concomitant]
     Active Substance: DICLOFENAC SODIUM
     Indication: CANCER PAIN
     Dosage: 50 MG, PRN
     Route: 054
     Dates: start: 20180209
  35. NIVOLUMAB [Suspect]
     Active Substance: NIVOLUMAB
     Indication: THYMOMA
     Dosage: 3 MG/KG, Q2WK
     Route: 041
     Dates: start: 20180206, end: 20180220
  36. NIVOLUMAB [Suspect]
     Active Substance: NIVOLUMAB
     Indication: PRODUCT USED FOR UNKNOWN INDICATION
     Dosage: 212.1 MG, UNK
     Route: 041
     Dates: start: 20180703, end: 20181016
  37. NAIXAN                             /00256201/ [Concomitant]
     Active Substance: NAPROXEN
     Indication: NEOPLASM
     Dosage: 200 MG, Q8H
     Route: 048
     Dates: start: 20180209
  38. NAIXAN                             /00256201/ [Concomitant]
     Active Substance: NAPROXEN
     Indication: CANCER PAIN
     Route: 065
  39. ALLOPURINOL WYETH [Concomitant]
     Indication: HYPERURICAEMIA
     Dosage: 100 MG, EVERYDAY
     Route: 048
     Dates: start: 20180515
  40. OXINORM                            /00045603/ [Concomitant]
     Active Substance: OXYCODONE HYDROCHLORIDE
     Indication: NEOPLASM
     Dosage: 10 MG, PRN
     Route: 048
  41. HYALEIN [Concomitant]
     Active Substance: HYALURONATE SODIUM
     Indication: CORNEAL DISORDER
     Route: 065

REACTIONS (4)
  - Pneumonia [Recovered/Resolved]
  - Hepatic function abnormal [Recovering/Resolving]
  - Ecthyma [Recovering/Resolving]
  - Pancreatic enzymes increased [Recovering/Resolving]

NARRATIVE: CASE EVENT DATE: 20180209
